FAERS Safety Report 17922947 (Version 1)
Quarter: 2020Q2

REPORT INFORMATION
  Report Type: Spontaneous
  Country: US (occurrence: US)
  Receive Date: 20200619
  Receipt Date: 20200619
  Transmission Date: 20200714
  Serious: Yes (Hospitalization)
  Sender: FDA-Public Use
  Company Number: None

PATIENT
  Age: 58 Year
  Sex: Male

DRUGS (10)
  1. AMOX/K CLAV [Concomitant]
     Active Substance: AMOXICILLIN\CLAVULANATE POTASSIUM
  2. AFINITOR [Suspect]
     Active Substance: EVEROLIMUS
     Indication: CARCINOID TUMOUR
     Route: 048
     Dates: start: 20190504
  3. BUDNES/FORMOT [Concomitant]
  4. ALBUTEROL NEB [Concomitant]
     Active Substance: ALBUTEROL
  5. TAMSULOSIN [Concomitant]
     Active Substance: TAMSULOSIN
  6. AFINITOR [Suspect]
     Active Substance: EVEROLIMUS
     Indication: THYMUS DISORDER
     Route: 048
     Dates: start: 20190504
  7. HYDROCO/APAP [Concomitant]
     Active Substance: ACETAMINOPHEN\HYDROCODONE
  8. PREDNISONE. [Concomitant]
     Active Substance: PREDNISONE
  9. METHOCARBAM [Concomitant]
     Active Substance: METHOCARBAMOL
  10. TRAMADOL HCL [Concomitant]
     Active Substance: TRAMADOL HYDROCHLORIDE

REACTIONS (2)
  - Fungal infection [None]
  - Lower respiratory tract infection fungal [None]

NARRATIVE: CASE EVENT DATE: 20200605
